FAERS Safety Report 8722025 (Version 3)
Quarter: 2012Q4

REPORT INFORMATION
  Report Type: 
  Country: JP (occurrence: JP)
  Receive Date: 20120814
  Receipt Date: 20120913
  Transmission Date: 20130627
  Serious: Yes (Other)
  Sender: FDA-Public Use
  Company Number: JP-PFIZER INC-2012193839

PATIENT
  Age: 72 Year
  Sex: Male
  Weight: 59.3 kg

DRUGS (7)
  1. UNASYN-S [Suspect]
     Indication: PROPHYLAXIS
     Dosage: 1.5 g, 2x/day
     Route: 042
     Dates: start: 20120306, end: 20120309
  2. LOXOPROFEN [Suspect]
     Dosage: 60 mg, 3x/day
     Route: 048
     Dates: start: 20120214
  3. MUCOSTA [Suspect]
     Dosage: 100 mg, 3x/day
     Route: 048
     Dates: start: 20120214
  4. KIPRES [Concomitant]
     Indication: ASTHMA
     Dosage: 10 mg, 1x/day
     Route: 048
  5. CLARITIN [Concomitant]
     Dosage: 10 mg, 1x/day
     Route: 048
     Dates: end: 20120305
  6. INTAL [Concomitant]
     Dosage: UNK
     Route: 047
  7. ADOAIR [Concomitant]
     Indication: ASTHMA
     Dosage: UNK

REACTIONS (1)
  - Enterocolitis haemorrhagic [Recovered/Resolved]
